FAERS Safety Report 9177605 (Version 1)
Quarter: 2013Q1

REPORT INFORMATION
  Report Type: Spontaneous
  Country: US (occurrence: US)
  Receive Date: 20130321
  Receipt Date: 20130321
  Transmission Date: 20140127
  Serious: Yes (Other)
  Sender: FDA-Public Use
  Company Number: US-BAYER-2013-032569

PATIENT
  Age: 26 Year
  Sex: Female

DRUGS (1)
  1. MIRENA [Suspect]
     Indication: CONTRACEPTION
     Dosage: 20 MCG/24HR, CONT
     Dates: start: 20121025, end: 20121113

REACTIONS (5)
  - Genital haemorrhage [None]
  - Abdominal pain [None]
  - Device expulsion [None]
  - Abortion spontaneous [None]
  - Maternal exposure before pregnancy [None]
